FAERS Safety Report 4520506-4 (Version None)
Quarter: 2004Q4

REPORT INFORMATION
  Report Type: 
  Country: None (occurrence: None)
  Receive Date: 20041203
  Receipt Date: 20041124
  Transmission Date: 20050328
  Serious: Yes (Disabling, Other)
  Sender: FDA-Public Use
  Company Number: 2004051029

PATIENT
  Age: 45 Year
  Sex: Female

DRUGS (1)
  1. NEURONTIN [Suspect]
     Indication: NEURALGIA
     Dates: start: 20041022

REACTIONS (10)
  - BRACHIAL PLEXUS INJURY [None]
  - LIMB INJURY [None]
  - MULTIPLE FRACTURES [None]
  - MUSCLE SPASMS [None]
  - NECK INJURY [None]
  - PAIN [None]
  - POLYTRAUMATISM [None]
  - ROAD TRAFFIC ACCIDENT [None]
  - SCAPULA FRACTURE [None]
  - SKELETAL INJURY [None]
